FAERS Safety Report 4613442-6 (Version None)
Quarter: 2005Q1

REPORT INFORMATION
  Report Type: 
  Country: None (occurrence: None)
  Receive Date: 20050317
  Receipt Date: 20050317
  Transmission Date: 20050727
  Serious: Yes (Other)
  Sender: FDA-Public Use
  Company Number: None

PATIENT
  Sex: Female

DRUGS (2)
  1. MICROGESTIN FE 1/20 [Suspect]
     Indication: MENSTRUATION IRREGULAR
  2. MICROGESTIN FE 1/20 [Suspect]
     Indication: UTERINE HAEMORRHAGE

REACTIONS (4)
  - HAEMORRHAGE [None]
  - MENSTRUATION IRREGULAR [None]
  - PHARMACEUTICAL PRODUCT COMPLAINT [None]
  - UTERINE HAEMORRHAGE [None]
